FAERS Safety Report 4610395-1 (Version None)
Quarter: 2005Q2

REPORT INFORMATION
  Report Type: 
  Country: None (occurrence: None)
  Receive Date: 20050301
  Receipt Date: 20041209
  Transmission Date: 20051028
  Serious: No
  Sender: FDA-Public Use
  Company Number: WAES 0412USA01218

PATIENT
  Age: 46 Year
  Sex: Male
  Weight: 87.5442 kg

DRUGS (3)
  1. ZETIA [Suspect]
     Dosage: 10 MG/PO
     Route: 048
     Dates: start: 20041101
  2. LIPITOR [Concomitant]
  3. ASPIRIN [Concomitant]

REACTIONS (4)
  - BASEDOW'S DISEASE [None]
  - BRONCHOSPASM [None]
  - COUGH [None]
  - HYPERHIDROSIS [None]
